FAERS Safety Report 5572838-9 (Version None)
Quarter: 2007Q4

REPORT INFORMATION
  Report Type: 
  Country: None (occurrence: None)
  Receive Date: 20071223
  Receipt Date: 20071219
  Transmission Date: 20080405
  Serious: Yes (Other)
  Sender: FDA-Public Use
  Company Number: PHNU2007DE04250

PATIENT
  Age: 55 Year
  Sex: Female

DRUGS (3)
  1. FEMARA [Concomitant]
  2. ZOLADEX [Concomitant]
  3. ZADITEN [Suspect]
     Dosage: UNK, UNK
     Dates: start: 20060101

REACTIONS (1)
  - INTRAOCULAR PRESSURE INCREASED [None]
